FAERS Safety Report 22590555 (Version 1)
Quarter: 2023Q2

REPORT INFORMATION
  Report Type: Spontaneous
  Country: CN (occurrence: CN)
  Receive Date: 20230612
  Receipt Date: 20230612
  Transmission Date: 20230722
  Serious: Yes (Death)
  Sender: FDA-Public Use
  Company Number: CN-TEVA-2023-CN-2896799

PATIENT
  Age: 63 Year
  Sex: Female

DRUGS (3)
  1. BENDAMUSTINE [Suspect]
     Active Substance: BENDAMUSTINE
     Indication: Plasma cell myeloma
     Dosage: ADMINISTERED UNDER THE BVD REGIMEN
     Route: 065
     Dates: start: 20200328
  2. BORTEZOMIB [Suspect]
     Active Substance: BORTEZOMIB
     Indication: Plasma cell myeloma
     Dosage: ADMINISTERED UNDER THE BVD REGIMEN
     Route: 065
     Dates: start: 20200328
  3. DEXAMETHASONE [Suspect]
     Active Substance: DEXAMETHASONE
     Indication: Plasma cell myeloma
     Dosage: ADMINISTERED UNDER THE BVD REGIMEN
     Route: 065
     Dates: start: 20200328

REACTIONS (1)
  - Drug ineffective [Fatal]
